FAERS Safety Report 16436910 (Version 3)
Quarter: 2019Q3

REPORT INFORMATION
  Report Type: Spontaneous
  Country: US (occurrence: US)
  Receive Date: 20190614
  Receipt Date: 20190801
  Transmission Date: 20191004
  Serious: No
  Sender: FDA-Public Use
  Company Number: PHHY2019US133949

PATIENT
  Sex: Female

DRUGS (4)
  1. ZADITOR [Suspect]
     Active Substance: KETOTIFEN FUMARATE
     Indication: PRODUCT USED FOR UNKNOWN INDICATION
     Dosage: UNK
     Route: 047
  2. ZADITOR [Suspect]
     Active Substance: KETOTIFEN FUMARATE
     Dosage: UNK
     Route: 047
  3. ZADITOR [Suspect]
     Active Substance: KETOTIFEN FUMARATE
     Dosage: UNK
     Route: 047
  4. ZADITOR [Suspect]
     Active Substance: KETOTIFEN FUMARATE
     Dosage: UNK
     Route: 047

REACTIONS (2)
  - Product quality issue [Unknown]
  - Eye disorder [Recovered/Resolved]
